FAERS Safety Report 18002498 (Version 3)
Quarter: 2023Q1

REPORT INFORMATION
  Report Type: Report from Study
  Country: DE (occurrence: None)
  Receive Date: 20200710
  Receipt Date: 20230118
  Transmission Date: 20230418
  Serious: Yes (Hospitalization, Other)
  Sender: FDA-Public Use
  Company Number: DE-MERCK HEALTHCARE KGAA-9172363

PATIENT
  Age: 54 Year
  Sex: Female
  Weight: 69 kg

DRUGS (4)
  1. REBIF [Suspect]
     Active Substance: INTERFERON BETA-1A
     Indication: Multiple sclerosis
     Route: 058
     Dates: start: 2004
  2. VITAMIN D3 [Concomitant]
     Active Substance: CHOLECALCIFEROL
     Indication: Product used for unknown indication
     Dosage: 20,000 IU
  3. TAVU [Concomitant]
     Indication: Product used for unknown indication
     Dosage: ONCE IN BOTH EYES
  4. SIMBRINZA [Concomitant]
     Active Substance: BRIMONIDINE TARTRATE\BRINZOLAMIDE
     Indication: Product used for unknown indication
     Dosage: 10/2 MG/ML, MORNING AND EVENING IN BOTH EYES

REACTIONS (20)
  - Encephalomyelitis [Unknown]
  - Gastrointestinal stromal tumour [Unknown]
  - Metastases to liver [Unknown]
  - Pancreatic failure [Unknown]
  - Optic atrophy [Unknown]
  - Glaucoma [Unknown]
  - Osteochondrosis [Unknown]
  - Incisional hernia [Unknown]
  - Drug interaction [Unknown]
  - Injection site pain [Unknown]
  - Injection site erythema [Unknown]
  - Pyrexia [Not Recovered/Not Resolved]
  - Gait disturbance [Not Recovered/Not Resolved]
  - Paraesthesia [Not Recovered/Not Resolved]
  - Muscular weakness [Unknown]
  - Diverticulum intestinal [Unknown]
  - Raynaud^s phenomenon [Unknown]
  - Heart rate decreased [Unknown]
  - Uterine leiomyoma [Unknown]
  - Multiple sclerosis [Unknown]

NARRATIVE: CASE EVENT DATE: 20060301
